FAERS Safety Report 20724898 (Version 3)
Quarter: 2022Q3

REPORT INFORMATION
  Report Type: Spontaneous
  Country: JP (occurrence: JP)
  Receive Date: 20220419
  Receipt Date: 20220715
  Transmission Date: 20221027
  Serious: Yes (Death, Other)
  Sender: FDA-Public Use
  Company Number: JP-GLAXOSMITHKLINE-JP2022JPN065745

PATIENT

DRUGS (3)
  1. SOTROVIMAB [Suspect]
     Active Substance: SOTROVIMAB
     Indication: COVID-19
     Dosage: 500 MG/100 ML/30 MIN, DISCONTINUED WITH REMAINING DOSE 20 ML
     Route: 041
     Dates: start: 20220225, end: 20220225
  2. SOTROVIMAB [Suspect]
     Active Substance: SOTROVIMAB
     Dosage: 10 ML OF 20 ML REINJECTED, ENDED WITH REMAINING DOSE 10 ML
     Route: 041
     Dates: start: 20220225, end: 20220225
  3. CEFOPERAZONE SODIUM\SULBACTAM SODIUM [Concomitant]
     Active Substance: CEFOPERAZONE SODIUM\SULBACTAM SODIUM
     Indication: Prophylaxis
     Dosage: 2 G
     Route: 041
     Dates: start: 20220221, end: 20220317

REACTIONS (7)
  - Marasmus [Fatal]
  - Depressed level of consciousness [Recovered/Resolved]
  - Peripheral coldness [Recovered/Resolved]
  - Oxygen saturation decreased [Recovered/Resolved]
  - Infusion related reaction [Recovered/Resolved]
  - Product use issue [Unknown]
  - Drug ineffective [Unknown]

NARRATIVE: CASE EVENT DATE: 20220201
